FAERS Safety Report 23973937 (Version 1)
Quarter: 2024Q2

REPORT INFORMATION
  Report Type: Spontaneous
  Country: IL (occurrence: IL)
  Receive Date: 20240613
  Receipt Date: 20240613
  Transmission Date: 20240716
  Serious: Yes (Other)
  Sender: FDA-Public Use
  Company Number: IL-JNJFOC-20240621984

PATIENT
  Age: 43 Year
  Sex: Male

DRUGS (2)
  1. ESKETAMINE [Suspect]
     Active Substance: ESKETAMINE
     Indication: Depression
     Dosage: THE INDUCTION PERIOD WAS EXTENDED TO 8 WEEKS INSTEAD OF 4 WEEKS.
     Dates: start: 2022
  2. ESKETAMINE [Suspect]
     Active Substance: ESKETAMINE

REACTIONS (3)
  - Blood pressure increased [Unknown]
  - Depression [Recovered/Resolved]
  - Off label use [Unknown]
